FAERS Safety Report 11274226 (Version 1)
Quarter: 2015Q3

REPORT INFORMATION
  Report Type: Spontaneous
  Country: US (occurrence: US)
  Receive Date: 20150715
  Receipt Date: 20150715
  Transmission Date: 20151125
  Serious: Yes (Hospitalization)
  Sender: FDA-Public Use
  Company Number: US-ASTRAZENECA-2015SE66982

PATIENT
  Age: 21781 Day
  Sex: Female
  Weight: 99.8 kg

DRUGS (5)
  1. SYMBICORT [Suspect]
     Active Substance: BUDESONIDE\FORMOTEROL FUMARATE DIHYDRATE
     Indication: LUNG NEOPLASM MALIGNANT
     Dosage: 160MCG-4.5, TWO PUFFS TWICE A DAY
     Route: 055
  2. MAGNESIUM [Concomitant]
     Active Substance: MAGNESIUM
     Indication: IMMUNE SYSTEM DISORDER
     Route: 048
  3. VITAMIN B12 [Concomitant]
     Active Substance: CYANOCOBALAMIN
     Indication: IMMUNE SYSTEM DISORDER
     Route: 048
  4. VITAMIN C [Concomitant]
     Active Substance: ASCORBIC ACID
     Indication: IMMUNE SYSTEM DISORDER
     Route: 048
  5. VITAMIN D 3 [Concomitant]
     Indication: IMMUNE SYSTEM DISORDER
     Route: 048

REACTIONS (3)
  - Intentional product misuse [Unknown]
  - Pneumonia [Recovered/Resolved]
  - Product use issue [Unknown]

NARRATIVE: CASE EVENT DATE: 20150610
